FAERS Safety Report 7514782-3 (Version None)
Quarter: 2011Q2

REPORT INFORMATION
  Report Type: 
  Country: None (occurrence: None)
  Receive Date: 20110601
  Receipt Date: 20110526
  Transmission Date: 20111010
  Serious: Yes (Other)
  Sender: FDA-Public Use
  Company Number: US-AMGEN-USASP2011027494

PATIENT
  Sex: Male

DRUGS (2)
  1. NPLATE [Suspect]
     Indication: IDIOPATHIC THROMBOCYTOPENIC PURPURA
     Dosage: 1 A?G/KG, UNK
     Dates: start: 20110110, end: 20110325
  2. NPLATE [Suspect]
     Dates: start: 20110110, end: 20110325

REACTIONS (2)
  - PANCYTOPENIA [None]
  - THERAPEUTIC RESPONSE DECREASED [None]
